FAERS Safety Report 8425058-4 (Version None)
Quarter: 2012Q2

REPORT INFORMATION
  Report Type: 
  Country: None (occurrence: None)
  Receive Date: 20120605
  Receipt Date: 20120605
  Transmission Date: 20120825
  Serious: Yes (Hospitalization)
  Sender: FDA-Public Use
  Company Number: None

PATIENT
  Sex: Female
  Weight: 87.9 kg

DRUGS (2)
  1. CYCLOPHOSPHAMIDE [Suspect]
     Dosage: 1140 MG
  2. TAXOTERE [Suspect]

REACTIONS (6)
  - PNEUMATOSIS INTESTINALIS [None]
  - BACK PAIN [None]
  - DYSPNOEA [None]
  - GASTROINTESTINAL NECROSIS [None]
  - HEPATIC NECROSIS [None]
  - PNEUMOBILIA [None]
